FAERS Safety Report 5253167-X (Version None)
Quarter: 2007Q1

REPORT INFORMATION
  Report Type: 
  Country: None (occurrence: None)
  Receive Date: 20061201
  Receipt Date: 20060826
  Transmission Date: 20070707
  Serious: No
  Sender: FDA-Public Use
  Company Number: 2006PV020371

PATIENT
  Age: 68 Year
  Sex: Female
  Weight: 61.6892 kg

DRUGS (8)
  1. BYETTA [Suspect]
     Indication: DIABETES MELLITUS NON-INSULIN-DEPENDENT
     Dosage: SEE IMAGE
     Route: 058
     Dates: start: 20060501, end: 20060601
  2. BYETTA [Suspect]
     Indication: DIABETES MELLITUS NON-INSULIN-DEPENDENT
     Dosage: SEE IMAGE
     Route: 058
     Dates: start: 20060601, end: 20060803
  3. BYETTA [Suspect]
     Indication: DIABETES MELLITUS NON-INSULIN-DEPENDENT
     Dosage: SEE IMAGE
     Route: 058
     Dates: start: 20060804
  4. BYETTA [Suspect]
     Indication: DIABETES MELLITUS NON-INSULIN-DEPENDENT
     Dosage: SEE IMAGE
     Route: 058
     Dates: start: 20060804
  5. BYETTA [Suspect]
  6. GLIPIZIDE [Concomitant]
  7. ACTOS /USA/ [Concomitant]
  8. .. [Concomitant]

REACTIONS (9)
  - ANOREXIA [None]
  - BLOOD GLUCOSE INCREASED [None]
  - CHILLS [None]
  - ERUCTATION [None]
  - HEADACHE [None]
  - HICCUPS [None]
  - LETHARGY [None]
  - NAUSEA [None]
  - WEIGHT DECREASED [None]
